FAERS Safety Report 5409999-8 (Version None)
Quarter: 2007Q3

REPORT INFORMATION
  Report Type: 
  Country: None (occurrence: None)
  Receive Date: 20070809
  Receipt Date: 20070731
  Transmission Date: 20080115
  Serious: Yes (Other)
  Sender: FDA-Public Use
  Company Number: GB-ABBOTT-07P-167-0376507-00

PATIENT
  Age: 40 Year
  Sex: Male

DRUGS (7)
  1. NORVIR [Suspect]
     Indication: HIV INFECTION
     Dates: start: 20070416
  2. DARUNAVIR [Suspect]
     Indication: PATHOGEN RESISTANCE
     Dates: start: 20070416
  3. RALTEGRAVIR POTASSIUM [Suspect]
     Indication: DRUG USE FOR UNKNOWN INDICATION
     Dates: start: 20070404
  4. LAMIVUDINE + ZIDOVUDINE [Concomitant]
     Indication: HIV INFECTION
     Dates: start: 20070416
  5. AZITHROMYCIN [Concomitant]
     Indication: HIV INFECTION
     Dates: start: 20020101
  6. DAPSONE [Concomitant]
     Indication: HIV INFECTION
     Dates: start: 20020101
  7. TENOFOVIR DISOPROXIL FUMARATE [Concomitant]
     Indication: HIV INFECTION
     Dates: start: 20070416

REACTIONS (4)
  - ARTHRALGIA [None]
  - CHONDROCALCINOSIS PYROPHOSPHATE [None]
  - ERYTHEMA [None]
  - LOCAL SWELLING [None]
